FAERS Safety Report 5924607-5 (Version None)
Quarter: 2008Q3

REPORT INFORMATION
  Report Type: 
  Country: None (occurrence: None)
  Receive Date: 20080909
  Receipt Date: 20080401
  Transmission Date: 20090109
  Serious: Yes (Hospitalization)
  Sender: FDA-Public Use
  Company Number: 163-20785-08021393

PATIENT
  Sex: Female

DRUGS (2)
  1. THALOMID [Suspect]
     Indication: MULTIPLE MYELOMA
     Dosage: 100 MG, 2 IN 1 D, ORAL ; 200 MG, DAILY, ORAL
     Route: 048
     Dates: start: 20080111, end: 20080101
  2. THALOMID [Suspect]
     Indication: MULTIPLE MYELOMA
     Dosage: 100 MG, 2 IN 1 D, ORAL ; 200 MG, DAILY, ORAL
     Route: 048
     Dates: start: 20080130

REACTIONS (1)
  - MULTIPLE MYELOMA [None]
